FAERS Safety Report 13157406 (Version 4)
Quarter: 2017Q2

REPORT INFORMATION
  Report Type: Report from Study
  Country: US (occurrence: US)
  Receive Date: 20170127
  Receipt Date: 20170502
  Transmission Date: 20170830
  Serious: Yes (Hospitalization, Other)
  Sender: FDA-Public Use
  Company Number: US-AMGEN-USASL2017011425

PATIENT
  Age: 62 Year
  Sex: Female

DRUGS (11)
  1. FLONASE [Concomitant]
     Active Substance: FLUTICASONE PROPIONATE
     Dosage: UNK UNK, QD (TWO SPRAYS EACH NOSTRIL)
  2. SULFASALAZINE. [Concomitant]
     Active Substance: SULFASALAZINE
     Dosage: 500 MG, QID
  3. ENBREL [Suspect]
     Active Substance: ETANERCEPT
     Indication: PSORIATIC ARTHROPATHY
     Dosage: 50 UNK, QWK
     Route: 065
     Dates: start: 20140607
  4. SULFASALAZINE. [Concomitant]
     Active Substance: SULFASALAZINE
     Dosage: 500 MG, 2BID (INCREASED TO FOUR TABLETS)
  5. ENBREL [Suspect]
     Active Substance: ETANERCEPT
     Dosage: 50 UNK, QWK
     Route: 065
  6. ASA [Concomitant]
     Active Substance: ASPIRIN
     Dosage: 81 MG, QD
  7. SUMATRIPTAN. [Concomitant]
     Active Substance: SUMATRIPTAN
     Indication: MIGRAINE
     Dosage: UNK UNK, Q2H (PRN)
  8. TRAZODONE [Concomitant]
     Active Substance: TRAZODONE HYDROCHLORIDE
     Dosage: 100 MG, 2QHS
  9. DULOXETINE. [Concomitant]
     Active Substance: DULOXETINE
     Dosage: 60 MG, AT BEDTIME
  10. GABAPENTIN. [Concomitant]
     Active Substance: GABAPENTIN
     Dosage: 800 MG, QD
  11. TOPIRAMATE. [Concomitant]
     Active Substance: TOPIRAMATE
     Dosage: UNK, 2QHS

REACTIONS (11)
  - Malaise [Not Recovered/Not Resolved]
  - Spinal operation [Unknown]
  - Pulse abnormal [Unknown]
  - Nerve block [Unknown]
  - Hypotension [Unknown]
  - Drug dose omission [Unknown]
  - Urinary tract infection [Unknown]
  - Syncope [Unknown]
  - Epidural injection [Unknown]
  - Head injury [Unknown]
  - Eye contusion [Unknown]

NARRATIVE: CASE EVENT DATE: 2015
